FAERS Safety Report 18010519 (Version 1)
Quarter: 2020Q3

REPORT INFORMATION
  Report Type: Spontaneous
  Country: ES (occurrence: ES)
  Receive Date: 20200711
  Receipt Date: 20200711
  Transmission Date: 20201103
  Serious: Yes (Hospitalization)
  Sender: FDA-Public Use
  Company Number: NVSC2020ES191774

PATIENT
  Age: 60 Year
  Sex: Female

DRUGS (1)
  1. COSENTYX [Suspect]
     Active Substance: SECUKINUMAB
     Indication: PSORIATIC ARTHROPATHY
     Dosage: 300 MG / 4 SEMANAS
     Route: 058
     Dates: start: 20170518, end: 20191105

REACTIONS (5)
  - Pyelonephritis acute [Recovered/Resolved with Sequelae]
  - Pyelonephritis fungal [Recovered/Resolved with Sequelae]
  - Septic shock [Recovered/Resolved with Sequelae]
  - Renal impairment [Recovered/Resolved with Sequelae]
  - Postrenal failure [Recovered/Resolved with Sequelae]

NARRATIVE: CASE EVENT DATE: 20191105
